FAERS Safety Report 6155013-9 (Version None)
Quarter: 2009Q2

REPORT INFORMATION
  Report Type: 
  Country: None (occurrence: None)
  Receive Date: 20090414
  Receipt Date: 20090402
  Transmission Date: 20091009
  Serious: Yes (Disabling)
  Sender: FDA-Public Use
  Company Number: US-GENENTECH-268478

PATIENT
  Sex: Male

DRUGS (4)
  1. EFALIZUMAB [Suspect]
     Indication: PSORIASIS
     Dosage: 1 MG, QOW
     Route: 058
     Dates: end: 20080901
  2. TOPICAL STEROID (UNK INGREDIENTS) [Concomitant]
     Indication: DRUG USE FOR UNKNOWN INDICATION
     Dosage: UNK
     Dates: start: 20060524
  3. DERMA-SMOOTHE/FS [Concomitant]
     Indication: DRUG USE FOR UNKNOWN INDICATION
     Dosage: UNK
     Dates: start: 20061212
  4. LUXIQ [Concomitant]
     Indication: DRUG USE FOR UNKNOWN INDICATION
     Dosage: UNK
     Dates: start: 20061212

REACTIONS (1)
  - LUPUS-LIKE SYNDROME [None]
